FAERS Safety Report 13981727 (Version 1)
Quarter: 2017Q3

REPORT INFORMATION
  Report Type: Spontaneous
  Country: US (occurrence: US)
  Receive Date: 20170918
  Receipt Date: 20170918
  Transmission Date: 20171128
  Serious: No
  Sender: FDA-Public Use
  Company Number: US-BION-006379

PATIENT
  Age: 91 Year
  Sex: Female

DRUGS (1)
  1. ZYRTEC [Suspect]
     Active Substance: CETIRIZINE HYDROCHLORIDE
     Indication: HYPERSENSITIVITY
     Route: 048

REACTIONS (5)
  - Dizziness [Unknown]
  - Fear [None]
  - Incorrect drug administration duration [Unknown]
  - Extra dose administered [None]
  - Confusional state [Unknown]

NARRATIVE: CASE EVENT DATE: 20170523
